FAERS Safety Report 22120845 (Version 1)
Quarter: 2023Q1

REPORT INFORMATION
  Report Type: Report from Study
  Country: US (occurrence: None)
  Receive Date: 20230321
  Receipt Date: 20230321
  Transmission Date: 20230417
  Serious: Yes (Death, Hospitalization)
  Sender: FDA-Public Use
  Company Number: US-ROCHE-2141025

PATIENT
  Sex: Female

DRUGS (2)
  1. ATEZOLIZUMAB [Suspect]
     Active Substance: ATEZOLIZUMAB
     Indication: Neoplasm
     Dosage: LAST DOSE OF ATEZOLIZUMAB 02/MAY/2018
     Route: 042
     Dates: start: 20171025
  2. BEVACIZUMAB [Suspect]
     Active Substance: BEVACIZUMAB
     Indication: Neoplasm
     Dosage: LAST DOSE OF BEVACIZUMAB 02/MAY/2018
     Route: 042
     Dates: start: 20171025

REACTIONS (4)
  - Blood bilirubin increased [Recovered/Resolved]
  - Death [Fatal]
  - Renal disorder [Recovered/Resolved]
  - Condition aggravated [Unknown]

NARRATIVE: CASE EVENT DATE: 20180117
